FAERS Safety Report 14932947 (Version 5)
Quarter: 2018Q4

REPORT INFORMATION
  Report Type: Spontaneous
  Country: US (occurrence: US)
  Receive Date: 20180524
  Receipt Date: 20181226
  Transmission Date: 20190204
  Serious: No
  Sender: FDA-Public Use
  Company Number: US-PFIZER INC-2018211179

PATIENT
  Age: 57 Year
  Sex: Female
  Weight: 104 kg

DRUGS (4)
  1. LYRICA [Suspect]
     Active Substance: PREGABALIN
     Indication: FIBROMYALGIA
     Dosage: UNK
     Dates: end: 20180101
  2. AMLODIPINE [Concomitant]
     Active Substance: AMLODIPINE BESYLATE
     Indication: BLOOD PRESSURE ABNORMAL
     Dosage: 10 MG, DAILY
     Route: 048
     Dates: start: 2008
  3. LYRICA [Suspect]
     Active Substance: PREGABALIN
     Indication: PLANTAR FASCIITIS
     Dosage: 75 MG, 2X/DAY [TAKE ONE CAPSULE BY MOUTH TWICE A DAY]
     Route: 048
     Dates: start: 201801, end: 201801
  4. LYRICA [Suspect]
     Active Substance: PREGABALIN
     Indication: NEURALGIA
     Dosage: 150 MG, 1X/DAY (TWO 75 MG CAPSULES BY MOUTH A DAY)
     Route: 048
     Dates: start: 201801, end: 2018

REACTIONS (5)
  - Pain [Unknown]
  - Product use issue [Unknown]
  - Insomnia [Not Recovered/Not Resolved]
  - Arthropathy [Not Recovered/Not Resolved]
  - Sensitivity to weather change [Unknown]

NARRATIVE: CASE EVENT DATE: 2018
